FAERS Safety Report 24008626 (Version 1)
Quarter: 2024Q2

REPORT INFORMATION
  Report Type: Spontaneous
  Country: US (occurrence: US)
  Receive Date: 20240625
  Receipt Date: 20240625
  Transmission Date: 20240717
  Serious: No
  Sender: FDA-Public Use
  Company Number: US-JNJFOC-20240651343

PATIENT
  Age: 66 Year
  Sex: Male
  Weight: 102.15 kg

DRUGS (1)
  1. AKEEGA [Suspect]
     Active Substance: ABIRATERONE ACETATE\NIRAPARIB TOSYLATE MONOHYDRATE
     Indication: Prostate cancer
     Dosage: 2- 100MG-500MG TABLETS) TOTAL OF 200MG-1000MG
     Route: 048
     Dates: start: 202402

REACTIONS (2)
  - Weight increased [Recovering/Resolving]
  - Hunger [Recovering/Resolving]

NARRATIVE: CASE EVENT DATE: 20240101
